FAERS Safety Report 8890102 (Version 1)
Quarter: 2012Q4

REPORT INFORMATION
  Report Type: 
  Country: GB (occurrence: GB)
  Receive Date: 20121107
  Receipt Date: 20121107
  Transmission Date: 20130627
  Serious: Yes (Other)
  Sender: FDA-Public Use
  Company Number: PHFR2012GB005806

PATIENT
  Age: 59 Year
  Sex: Male

DRUGS (1)
  1. TERBINAFINE [Suspect]
     Indication: FUNGAL INFECTION
     Dosage: 250 mg
     Route: 048
     Dates: start: 20120808, end: 20120913

REACTIONS (3)
  - Quality of life decreased [Unknown]
  - Ageusia [Not Recovered/Not Resolved]
  - Decreased appetite [Unknown]
